FAERS Safety Report 18807631 (Version 2)
Quarter: 2021Q1

REPORT INFORMATION
  Report Type: Spontaneous
  Country: FR (occurrence: FR)
  Receive Date: 20210129
  Receipt Date: 20210201
  Transmission Date: 20210419
  Serious: Yes (Death)
  Sender: FDA-Public Use
  Company Number: FR-JNJFOC-20210142051

PATIENT
  Age: 78 Year
  Sex: Female

DRUGS (4)
  1. DUROGESIC [Suspect]
     Active Substance: FENTANYL
     Indication: PAIN
     Route: 062
     Dates: start: 20210112
  2. UVEDOSE [Concomitant]
     Active Substance: CHOLECALCIFEROL
  3. NORMACOL [RHAMNUS FRANGULA;STERCULIA URENS] [Concomitant]
  4. ALPRAZOLAM. [Concomitant]
     Active Substance: ALPRAZOLAM

REACTIONS (3)
  - Pyrexia [Fatal]
  - Increased bronchial secretion [Fatal]
  - Death [Fatal]

NARRATIVE: CASE EVENT DATE: 20210118
